FAERS Safety Report 8622113-0 (Version None)
Quarter: 2012Q3

REPORT INFORMATION
  Report Type: 
  Country: None (occurrence: None)
  Receive Date: 20120826
  Receipt Date: 20120712
  Transmission Date: 20120928
  Serious: No
  Sender: FDA-Public Use
  Company Number: US-009507513-1207USA004089

PATIENT

DRUGS (2)
  1. INTEGRILIN [Suspect]
     Dosage: 7.9 ML, ONCE
     Dates: start: 20120711, end: 20120711
  2. INTEGRILIN [Suspect]
     Dosage: 8.5 ML, ONCE
     Dates: start: 20120711, end: 20120711

REACTIONS (2)
  - NO ADVERSE EVENT [None]
  - OVERDOSE [None]
